FAERS Safety Report 12346727 (Version 1)
Quarter: 2016Q2

REPORT INFORMATION
  Report Type: Spontaneous
  Country: US (occurrence: None)
  Receive Date: 20160506
  Receipt Date: 20160506
  Transmission Date: 20160815
  Serious: Yes (Disabling)
  Sender: FDA-Public Use
  Company Number: None

PATIENT
  Age: 74 Year
  Sex: Male
  Weight: 53.07 kg

DRUGS (8)
  1. MIRTAZAPINE. [Concomitant]
     Active Substance: MIRTAZAPINE
  2. PRAZOSIN [Concomitant]
     Active Substance: PRAZOSIN
  3. VITAMIN C [Concomitant]
     Active Substance: ASCORBIC ACID
  4. VITAMIN D [Concomitant]
     Active Substance: CHOLECALCIFEROL
  5. ZIDOVUDINE 300MG TAB [Suspect]
     Active Substance: ZIDOVUDINE
     Indication: HIV INFECTION
     Route: 048
     Dates: start: 20160130, end: 20160215
  6. COD LIVER OIL [Concomitant]
     Active Substance: COD LIVER OIL
  7. MELATONIN [Concomitant]
     Active Substance: MELATONIN
  8. CALCIUM [Concomitant]
     Active Substance: CALCIUM

REACTIONS (5)
  - Oedema [None]
  - Abasia [None]
  - Pain in extremity [None]
  - Oedema peripheral [None]
  - Impaired driving ability [None]

NARRATIVE: CASE EVENT DATE: 20160215
